FAERS Safety Report 9393498 (Version 1)
Quarter: 2013Q3

REPORT INFORMATION
  Report Type: Report from Study
  Country: GW (occurrence: GW)
  Receive Date: 20130710
  Receipt Date: 20130710
  Transmission Date: 20140515
  Serious: Yes (Death)
  Sender: FDA-Public Use
  Company Number: GW-ABBOTT-13P-071-1116044-00

PATIENT
  Age: 30 Year
  Sex: Female

DRUGS (6)
  1. KALETRA 200/50 [Suspect]
     Indication: HIV INFECTION
     Dosage: 400/100MG TWICE DAILY
     Route: 048
     Dates: start: 20130118
  2. TENOFOVIR [Concomitant]
     Indication: HIV INFECTION
     Route: 048
     Dates: start: 20130118
  3. LAMIVUDINE [Concomitant]
     Indication: HIV INFECTION
     Route: 048
     Dates: start: 20130118
  4. COTRIMOXAZOLE [Concomitant]
     Indication: PROPHYLAXIS
     Route: 048
     Dates: start: 20130118
  5. FOLIC ACID [Concomitant]
     Indication: SUPPLEMENTATION THERAPY
     Route: 048
     Dates: start: 20130118
  6. BENZATHIN PENICILLIN [Concomitant]
     Indication: SYPHILIS
     Route: 030
     Dates: start: 201301

REACTIONS (2)
  - Anaemia [Fatal]
  - Oedema [Fatal]
